FAERS Safety Report 21996194 (Version 1)
Quarter: 2023Q1

REPORT INFORMATION
  Report Type: Report from Study
  Country: BR (occurrence: BR)
  Receive Date: 20230215
  Receipt Date: 20230215
  Transmission Date: 20230417
  Serious: Yes (Other)
  Sender: FDA-Public Use
  Company Number: BR-002147023-NVSC2023BR031565

PATIENT
  Sex: Male

DRUGS (1)
  1. DIOVAN [Suspect]
     Active Substance: VALSARTAN
     Indication: Product used for unknown indication
     Dosage: 320 MG, (STOP DATE: 2 MONTHS AGO)
     Route: 065
     Dates: start: 2009

REACTIONS (6)
  - Cerebrovascular accident [Recovering/Resolving]
  - Infarction [Recovering/Resolving]
  - Sexual dysfunction [Recovering/Resolving]
  - Blood pressure abnormal [Recovering/Resolving]
  - Memory impairment [Recovering/Resolving]
  - Hypertension [Recovering/Resolving]
